FAERS Safety Report 17142351 (Version 1)
Quarter: 2019Q4

REPORT INFORMATION
  Report Type: Spontaneous
  Country: CA (occurrence: CA)
  Receive Date: 20191211
  Receipt Date: 20191211
  Transmission Date: 20200122
  Serious: Yes (Other)
  Sender: FDA-Public Use
  Company Number: CA-TEVA-2019-CA-1150901

PATIENT
  Age: 81 Year
  Sex: Female
  Weight: 45.4 kg

DRUGS (4)
  1. DIARRHEA RELIEF (LOPERAMIDE) [Suspect]
     Active Substance: LOPERAMIDE
     Indication: DIARRHOEA
     Dosage: 8 MILLIGRAM DAILY;
     Route: 048
  2. IMODIUM LIQUI-GELS LACTOSE FREE [Suspect]
     Active Substance: LOPERAMIDE HYDROCHLORIDE
     Dosage: 4 MILLIGRAM DAILY;
  3. PEPTO-BISMOL [Suspect]
     Active Substance: BISMUTH SUBSALICYLATE
     Dosage: 8 DOSAGE FORMS DAILY;
  4. OLESTYR REGULAR POWDER [Suspect]
     Active Substance: CHOLESTYRAMINE

REACTIONS (2)
  - Product formulation issue [Unknown]
  - Amnesia [Unknown]
